FAERS Safety Report 7810401-7 (Version None)
Quarter: 2011Q4

REPORT INFORMATION
  Report Type: 
  Country: None (occurrence: None)
  Receive Date: 20111012
  Receipt Date: 20110927
  Transmission Date: 20120403
  Serious: Yes (Other)
  Sender: FDA-Public Use
  Company Number: FR-ROCHE-1000548

PATIENT

DRUGS (6)
  1. MABTHERA [Suspect]
     Indication: B-CELL LYMPHOMA
     Dosage: DAY -21 AND DAY 14
  2. ETOPOSIDE [Suspect]
     Indication: B-CELL LYMPHOMA
  3. MELPHALAN HYDROCHLORIDE [Suspect]
     Indication: B-CELL LYMPHOMA
  4. CARMUSTINE [Suspect]
     Indication: B-CELL LYMPHOMA
  5. CYTARABINE [Suspect]
     Indication: B-CELL LYMPHOMA
  6. IBRITUMOMAB TIUXETAN AND YTTRIUM-90 [Suspect]
     Indication: B-CELL LYMPHOMA
     Dosage: 15 MBG/KG

REACTIONS (16)
  - NEUTROPENIA [None]
  - MUCOSAL INFLAMMATION [None]
  - RESPIRATORY SYNCYTIAL VIRUS INFECTION [None]
  - ILL-DEFINED DISORDER [None]
  - CYTOMEGALOVIRUS INFECTION [None]
  - CLOSTRIDIUM DIFFICILE COLITIS [None]
  - RASH ERYTHEMATOUS [None]
  - RENAL FAILURE ACUTE [None]
  - QUADRIPARESIS [None]
  - CYTOLYTIC HEPATITIS [None]
  - INFECTION [None]
  - PULMONARY FIBROSIS [None]
  - SPLENIC CANDIDIASIS [None]
  - BLADDER CANCER [None]
  - ERYSIPELAS [None]
  - LEUKAEMIA MONOCYTIC [None]
